FAERS Safety Report 5497575-0 (Version None)
Quarter: 2007Q4

REPORT INFORMATION
  Report Type: 
  Country: None (occurrence: None)
  Receive Date: 20071025
  Receipt Date: 20070522
  Transmission Date: 20080405
  Serious: No
  Sender: FDA-Public Use
  Company Number: A0631140A

PATIENT
  Age: 66 Year
  Sex: Female

DRUGS (7)
  1. ADVAIR DISKUS 100/50 [Suspect]
     Indication: ASTHMA
     Dosage: 1PUFF TWICE PER DAY
     Route: 055
     Dates: start: 20060301
  2. MEGESTROL ACETATE [Concomitant]
  3. PROTONIX [Concomitant]
  4. TOPROL-XL [Concomitant]
  5. PREDNISONE [Concomitant]
  6. CLARITIN [Concomitant]
  7. RESTORIL [Concomitant]

REACTIONS (2)
  - DERMATITIS [None]
  - PHARMACEUTICAL PRODUCT COMPLAINT [None]
